FAERS Safety Report 15208004 (Version 1)
Quarter: 2018Q4

REPORT INFORMATION
  Report Type: Spontaneous
  Country: US (occurrence: US)
  Receive Date: 20180727
  Receipt Date: 20180727
  Transmission Date: 20190204
  Serious: No
  Sender: FDA-Public Use
  Company Number: US-HIKMA PHARMACEUTICALS USA INC.-US-H14001-18-03973

PATIENT
  Sex: Female

DRUGS (2)
  1. CAPECITABINE. [Suspect]
     Active Substance: CAPECITABINE
     Indication: NEOPLASM MALIGNANT
     Route: 048
     Dates: start: 2011
  2. CAPECITABINE. [Suspect]
     Active Substance: CAPECITABINE
     Dosage: 3 TABLETS
     Route: 048
     Dates: start: 201803

REACTIONS (2)
  - Glossodynia [Not Recovered/Not Resolved]
  - Eructation [Not Recovered/Not Resolved]
